FAERS Safety Report 4389278-0 (Version None)
Quarter: 2004Q2

REPORT INFORMATION
  Report Type: 
  Country: None (occurrence: None)
  Receive Date: 20040624
  Receipt Date: 20010626
  Transmission Date: 20050107
  Serious: Yes (Disabling, Other)
  Sender: FDA-Public Use
  Company Number: KII-2001-0011342

PATIENT
  Sex: Male

DRUGS (1)
  1. OXYCONTIN [Suspect]
     Indication: DRUG USE FOR UNKNOWN INDICATION
     Dosage: INTRAVENOUS; INTRA-ARTERIAL

REACTIONS (3)
  - DRUG ABUSER [None]
  - HAND AMPUTATION [None]
  - MEDICATION ERROR [None]
